FAERS Safety Report 20462010 (Version 1)
Quarter: 2022Q1

REPORT INFORMATION
  Report Type: Spontaneous
  Country: US (occurrence: None)
  Receive Date: 20220211
  Receipt Date: 20220211
  Transmission Date: 20220423
  Serious: Yes (Hospitalization)
  Sender: FDA-Public Use
  Company Number: None

PATIENT
  Age: 39 Year
  Sex: Male
  Weight: 96.8 kg

DRUGS (13)
  1. APIXABAN [Suspect]
     Active Substance: APIXABAN
     Indication: Anticoagulant therapy
     Dosage: FREQUENCY : TWICE A DAY;?
     Route: 048
     Dates: start: 20200310, end: 20220210
  2. ASPIRIN [Concomitant]
     Active Substance: ASPIRIN
  3. AMLODIPINE BESYLATE [Concomitant]
     Active Substance: AMLODIPINE BESYLATE
  4. ATORVASTATIN [Concomitant]
     Active Substance: ATORVASTATIN
  5. CALCITRIOL [Concomitant]
     Active Substance: CALCITRIOL
  6. dicyclomine 10 mg [Concomitant]
  7. ESCITALOPRAM OXALATE [Concomitant]
     Active Substance: ESCITALOPRAM OXALATE
  8. INSULIN GLARGINE [Concomitant]
     Active Substance: INSULIN GLARGINE
  9. INSULIN LISPRO [Concomitant]
     Active Substance: INSULIN LISPRO
  10. pantoprazole 40 mg daily [Concomitant]
  11. quetiapine 100 mg qhs [Concomitant]
  12. velphoro 1000 mg tid [Concomitant]
  13. VITAMIN D [Concomitant]
     Active Substance: VITAMIN D NOS

REACTIONS (2)
  - Gastrointestinal haemorrhage [None]
  - Dialysis [None]

NARRATIVE: CASE EVENT DATE: 20220210
